FAERS Safety Report 8519068-6 (Version None)
Quarter: 2012Q3

REPORT INFORMATION
  Report Type: 
  Country: None (occurrence: None)
  Receive Date: 20120718
  Receipt Date: 20120712
  Transmission Date: 20120928
  Serious: Yes (Other)
  Sender: FDA-Public Use
  Company Number: US-PFIZER INC-2012168230

PATIENT
  Sex: Male

DRUGS (1)
  1. LIPITOR [Suspect]
     Dosage: 80 MG, UNK

REACTIONS (8)
  - BLOOD TESTOSTERONE DECREASED [None]
  - MOOD SWINGS [None]
  - BLOOD OESTROGEN INCREASED [None]
  - WEIGHT INCREASED [None]
  - MUSCLE ATROPHY [None]
  - HYPOTONIA [None]
  - LIBIDO DECREASED [None]
  - FAT TISSUE INCREASED [None]
